FAERS Safety Report 5736560-8 (Version None)
Quarter: 2008Q2

REPORT INFORMATION
  Report Type: 
  Country: None (occurrence: None)
  Receive Date: 20080506
  Receipt Date: 20070911
  Transmission Date: 20081010
  Serious: Yes (Death)
  Sender: FDA-Public Use
  Company Number: T200701083

PATIENT
  Age: 21 Year
  Sex: Male

DRUGS (1)
  1. METHADOSE [Suspect]
     Indication: PAIN
     Dates: start: 20040101

REACTIONS (2)
  - ACCIDENTAL OVERDOSE [None]
  - DEPENDENCE [None]
